FAERS Safety Report 12208796 (Version 1)
Quarter: 2016Q1

REPORT INFORMATION
  Report Type: Spontaneous
  Country: US (occurrence: US)
  Receive Date: 20160324
  Receipt Date: 20160324
  Transmission Date: 20160526
  Serious: No
  Sender: FDA-Public Use
  Company Number: US-SHIONOGI, INC-2015001089

PATIENT
  Age: 59 Year
  Sex: Female
  Weight: 56.69 kg

DRUGS (13)
  1. OSPHENA [Suspect]
     Active Substance: OSPEMIFENE
     Indication: VULVOVAGINAL DRYNESS
  2. TESTIM [Concomitant]
     Active Substance: TESTOSTERONE
     Indication: VULVOVAGINAL PAIN
     Dosage: 5 MG, PEA SIZE AMOUNT TO BACK OF CALF, QD
     Route: 061
  3. AMITRIPTYLINE [Concomitant]
     Active Substance: AMITRIPTYLINE
     Indication: VULVOVAGINAL PAIN
     Dosage: UNK
     Route: 065
     Dates: end: 201401
  4. PROGESTERONE. [Concomitant]
     Active Substance: PROGESTERONE
     Indication: UTERINE REPAIR
     Dosage: 40 MG, QD AT NIGHT
     Route: 065
  5. PROGESTERONE. [Concomitant]
     Active Substance: PROGESTERONE
     Indication: ATROPHIC VULVOVAGINITIS
  6. OSPHENA [Suspect]
     Active Substance: OSPEMIFENE
     Indication: VULVOVAGINAL BURNING SENSATION
     Dosage: 15 MG, DAILY (1/4 OF 60 MG TABLET)
     Route: 048
     Dates: start: 201306, end: 20140527
  7. TESTIM [Concomitant]
     Active Substance: TESTOSTERONE
     Indication: ATROPHIC VULVOVAGINITIS
  8. PROGESTERONE. [Concomitant]
     Active Substance: PROGESTERONE
     Indication: VULVOVAGINAL PAIN
     Dosage: 50 MG, QD AT NIGHT
     Route: 065
  9. AMITRIPTYLINE [Concomitant]
     Active Substance: AMITRIPTYLINE
     Indication: NEURALGIA
  10. CLONAZEPAM. [Concomitant]
     Active Substance: CLONAZEPAM
     Indication: NEURALGIA
  11. TESTIM [Concomitant]
     Active Substance: TESTOSTERONE
     Indication: VESTIBULITIS
     Dosage: 2.5 MG, UNK
     Route: 061
  12. OSPHENA [Suspect]
     Active Substance: OSPEMIFENE
     Indication: DYSPAREUNIA
     Dosage: 30 MG, DAILY (1/2 OF 60 MG TABLET)
     Route: 048
     Dates: start: 20130625, end: 201306
  13. CLONAZEPAM. [Concomitant]
     Active Substance: CLONAZEPAM
     Indication: VULVOVAGINAL PAIN
     Dosage: 0.25 MG, BID (ONE DOSE DURING THE DAY, ONE DOSE AT NIGHT)
     Route: 065
     Dates: start: 201401

REACTIONS (7)
  - Vulvovaginal burning sensation [Recovered/Resolved]
  - Nausea [Recovered/Resolved]
  - Intentional product use issue [Unknown]
  - Sex hormone binding globulin increased [Unknown]
  - Labelled drug-drug interaction medication error [Unknown]
  - Therapeutic response unexpected [Unknown]
  - Blood oestrogen decreased [Unknown]

NARRATIVE: CASE EVENT DATE: 2013
